FAERS Safety Report 5692897-2 (Version None)
Quarter: 2008Q2

REPORT INFORMATION
  Report Type: 
  Country: None (occurrence: None)
  Receive Date: 20080326
  Receipt Date: 20071218
  Transmission Date: 20081010
  Serious: No
  Sender: FDA-Public Use
  Company Number: US-CVT-070190

PATIENT
  Age: 80 Year
  Sex: Female

DRUGS (6)
  1. RANEXA [Suspect]
     Indication: DRUG USE FOR UNKNOWN INDICATION
     Dosage: 500 MG, BID, ORAL
     Route: 048
     Dates: start: 20071107, end: 20071112
  2. XANAX [Concomitant]
  3. METOPROLOL/00376901/ (METOPROLOL) [Concomitant]
  4. LOVASTATIN [Concomitant]
  5. ASPIRIN [Concomitant]
  6. ZESTRIL [Concomitant]

REACTIONS (1)
  - CHEST DISCOMFORT [None]
